FAERS Safety Report 4350690-7 (Version None)
Quarter: 2004Q2

REPORT INFORMATION
  Report Type: 
  Country: None (occurrence: None)
  Receive Date: 20040428
  Receipt Date: 20040415
  Transmission Date: 20050107
  Serious: Yes (Other)
  Sender: FDA-Public Use
  Company Number: 2004-FF-00139FF

PATIENT
  Age: 56 Year
  Sex: Male

DRUGS (5)
  1. ATROVENT [Suspect]
     Indication: CHRONIC OBSTRUCTIVE AIRWAYS DISEASE
     Dosage: ORN
     Route: 055
     Dates: start: 20040201
  2. PREDNISONE TAB [Concomitant]
  3. FORADIL [Concomitant]
  4. ELIXOTIDE (FLUTICASONE) [Concomitant]
  5. THEOPHYLLINE [Concomitant]

REACTIONS (2)
  - CHORIORETINITIS [None]
  - VISUAL ACUITY REDUCED [None]
